FAERS Safety Report 8819746 (Version 1)
Quarter: 2012Q4

REPORT INFORMATION
  Report Type: 
  Country: US (occurrence: US)
  Receive Date: 20121001
  Receipt Date: 20121001
  Transmission Date: 20130627
  Serious: Yes (Other)
  Sender: FDA-Public Use
  Company Number: US-ROCHE-1129417

PATIENT
  Sex: Female

DRUGS (3)
  1. HERCEPTIN [Suspect]
     Indication: BREAST CANCER
     Route: 065
     Dates: start: 20000830
  2. SILVADENE [Concomitant]
  3. MAGNESIUM SULPHATE [Concomitant]
     Route: 065

REACTIONS (5)
  - Nausea [Unknown]
  - Wound [Unknown]
  - Pain in extremity [Unknown]
  - Arthralgia [Unknown]
  - Metastasis [Unknown]
